FAERS Safety Report 13352821 (Version 1)
Quarter: 2017Q1

REPORT INFORMATION
  Report Type: Report from Study
  Country: US (occurrence: US)
  Receive Date: 20170320
  Receipt Date: 20170320
  Transmission Date: 20170429
  Serious: Yes (Hospitalization)
  Sender: FDA-Public Use
  Company Number: US-AMGEN-USASL2017040694

PATIENT
  Sex: Female

DRUGS (2)
  1. ENBREL [Suspect]
     Active Substance: ETANERCEPT
     Indication: RHEUMATOID ARTHRITIS
     Dosage: 50 MG, UNK
     Route: 065
  2. MTX [Suspect]
     Active Substance: METHOTREXATE SODIUM
     Indication: PRODUCT USED FOR UNKNOWN INDICATION
     Dosage: UNK
     Route: 065

REACTIONS (9)
  - Rash [Unknown]
  - Hot flush [Unknown]
  - Respiratory disorder [Unknown]
  - Mobility decreased [Unknown]
  - Hypoxia [Unknown]
  - Pain in extremity [Unknown]
  - Peripheral swelling [Unknown]
  - Injection site hypersensitivity [Unknown]
  - Drug hypersensitivity [Unknown]
